FAERS Safety Report 5712698-6 (Version None)
Quarter: 2008Q2

REPORT INFORMATION
  Report Type: 
  Country: None (occurrence: None)
  Receive Date: 20080418
  Receipt Date: 20080403
  Transmission Date: 20081010
  Serious: Yes (Hospitalization)
  Sender: FDA-Public Use
  Company Number: MEDI-0006579

PATIENT
  Age: 7 Month

DRUGS (3)
  1. SYNAGIS [Suspect]
     Indication: ANTIVIRAL PROPHYLAXIS
     Dosage: 120 MG, INTRAMUSCULAR
     Route: 030
     Dates: end: 20071031
  2. FUROSEMIDE [Concomitant]
  3. SPIRONOLACTONE [Concomitant]

REACTIONS (2)
  - BLOOD CREATININE DECREASED [None]
  - GASTRITIS [None]
